FAERS Safety Report 21308721 (Version 1)
Quarter: 2022Q3

REPORT INFORMATION
  Report Type: Spontaneous
  Country: RU (occurrence: RU)
  Receive Date: 20220908
  Receipt Date: 20220908
  Transmission Date: 20221026
  Serious: Yes (Other)
  Sender: FDA-Public Use
  Company Number: RU-009507513-2209RUS001851

PATIENT
  Age: 86 Year
  Sex: Female

DRUGS (3)
  1. LAGEVRIO [Suspect]
     Active Substance: MOLNUPIRAVIR
     Indication: COVID-19 treatment
     Dosage: 1 CAPSULE 2 TIMES A DAY
     Route: 048
     Dates: start: 20220802, end: 20220802
  2. LAGEVRIO [Suspect]
     Active Substance: MOLNUPIRAVIR
     Dosage: 2 CAPSULES 2 TIMES A DAY
     Route: 048
     Dates: start: 20220803, end: 20220803
  3. LAGEVRIO [Suspect]
     Active Substance: MOLNUPIRAVIR
     Dosage: 4 CAPSULES 2 TIMES A DAY
     Route: 048
     Dates: start: 20220804

REACTIONS (5)
  - Arrhythmia [Unknown]
  - Syncope [Not Recovered/Not Resolved]
  - Concomitant disease aggravated [Unknown]
  - Product prescribing issue [Unknown]
  - Incorrect dose administered [Unknown]

NARRATIVE: CASE EVENT DATE: 20220101
